FAERS Safety Report 6412134-0 (Version None)
Quarter: 2009Q4

REPORT INFORMATION
  Report Type: 
  Country: None (occurrence: None)
  Receive Date: 20091023
  Receipt Date: 20091012
  Transmission Date: 20100525
  Serious: Yes (Hospitalization)
  Sender: FDA-Public Use
  Company Number: AU-JNJFOC-20091006736

PATIENT
  Sex: Female
  Weight: 89 kg

DRUGS (6)
  1. TRAMADOL HYDROCHLORIDE [Suspect]
     Indication: DRUG USE FOR UNKNOWN INDICATION
     Route: 048
  2. GLUCOSAMINE [Concomitant]
     Route: 065
  3. MICARDIS [Concomitant]
     Route: 065
  4. NATRILIX [Concomitant]
     Route: 065
  5. PANAMAX [Concomitant]
     Route: 065
  6. SOMAC [Concomitant]
     Route: 065

REACTIONS (4)
  - BACK PAIN [None]
  - BLOOD AMYLASE INCREASED [None]
  - FATIGUE [None]
  - HYPERHIDROSIS [None]
